FAERS Safety Report 16222579 (Version 1)
Quarter: 2019Q2

REPORT INFORMATION
  Report Type: Spontaneous
  Country: US (occurrence: US)
  Receive Date: 20190419
  Receipt Date: 20190419
  Transmission Date: 20190711
  Serious: No
  Sender: FDA-Public Use
  Company Number: None

PATIENT
  Age: 59 Year
  Sex: Female

DRUGS (8)
  1. XELJANZ [Suspect]
     Active Substance: TOFACITINIB CITRATE
     Indication: RHEUMATOID ARTHRITIS
     Dates: start: 20190322, end: 20190418
  2. PRAVASTATIN. [Concomitant]
     Active Substance: PRAVASTATIN
  3. METOPROLOL TARTRATE. [Concomitant]
     Active Substance: METOPROLOL TARTRATE
  4. METHOTREXATE. [Concomitant]
     Active Substance: METHOTREXATE
  5. METHYLPRED [Concomitant]
     Active Substance: METHYLPREDNISOLONE
  6. LOSARTAN. [Concomitant]
     Active Substance: LOSARTAN
  7. SPIRONOLACT [Concomitant]
     Active Substance: SPIRONOLACTONE
  8. BRILINTA [Concomitant]
     Active Substance: TICAGRELOR

REACTIONS (3)
  - Influenza like illness [None]
  - Therapy cessation [None]
  - Pneumonia [None]

NARRATIVE: CASE EVENT DATE: 20190405
